FAERS Safety Report 7304708-X (Version None)
Quarter: 2011Q1

REPORT INFORMATION
  Report Type: 
  Country: None (occurrence: None)
  Receive Date: 20110222
  Receipt Date: 20110209
  Transmission Date: 20110831
  Serious: No
  Sender: FDA-Public Use
  Company Number: US-PFIZER INC-US-WYE-H14848010

PATIENT
  Age: 55 Year
  Sex: Female

DRUGS (5)
  1. TYLENOL [Suspect]
  2. ALEVE [Suspect]
  3. PRISTIQ [Suspect]
     Dosage: REDUCED TO UNKNOWN DOSE EVERY OTHER DAY
     Route: 048
  4. PRISTIQ [Suspect]
     Dosage: UNKNOWN
     Route: 065
  5. CYMBALTA [Suspect]

REACTIONS (4)
  - DRUG INEFFECTIVE [None]
  - ABNORMAL DREAMS [None]
  - CONTUSION [None]
  - SCIATICA [None]
